FAERS Safety Report 10030119 (Version 2)
Quarter: 2014Q1

REPORT INFORMATION
  Report Type: Spontaneous
  Country: US (occurrence: US)
  Receive Date: 20140323
  Receipt Date: 20140323
  Transmission Date: 20141002
  Serious: No
  Sender: FDA-Public Use
  Company Number: US-ALLERGAN-1311431US

PATIENT
  Sex: Female

DRUGS (2)
  1. LATISSE 0.03% [Suspect]
     Indication: GROWTH OF EYELASHES
     Dosage: 2 GTT, QHS
     Route: 061
  2. TEARS NATURELLE [Concomitant]
     Indication: DRY EYE
     Dosage: UNK, PRN

REACTIONS (2)
  - Erythema [Recovered/Resolved]
  - Eyelid irritation [Recovered/Resolved]
